FAERS Safety Report 23850614 (Version 4)
Quarter: 2024Q2

REPORT INFORMATION
  Report Type: Spontaneous
  Country: US (occurrence: US)
  Receive Date: 20240513
  Receipt Date: 20240514
  Transmission Date: 20240716
  Serious: No
  Sender: FDA-Public Use
  Company Number: US-SANDOZ-SDZ2024US047771

PATIENT
  Age: 20 Year
  Sex: Female

DRUGS (2)
  1. HYRIMOZ [Suspect]
     Active Substance: ADALIMUMAB-ADAZ
     Dosage: 80 MG, Q2W, 160MG LOADING DOSE - 2X 80MG/0.8ML SENSOREADY PENS
     Route: 065
     Dates: start: 20240510
  2. HYRIMOZ [Suspect]
     Active Substance: ADALIMUMAB-ADAZ
     Indication: Crohn^s disease
     Dosage: 80 MG,ONE SINGLE DOSE
     Route: 058
     Dates: start: 20240510

REACTIONS (4)
  - Exposure via skin contact [Recovered/Resolved]
  - Injection site pain [Recovered/Resolved]
  - Accidental exposure to product [Recovered/Resolved]
  - Device use error [Unknown]

NARRATIVE: CASE EVENT DATE: 20240510
